FAERS Safety Report 8844626 (Version 1)
Quarter: 2012Q4

REPORT INFORMATION
  Report Type: 
  Country: US (occurrence: US)
  Receive Date: 20121017
  Receipt Date: 20121017
  Transmission Date: 20130627
  Serious: No
  Sender: FDA-Public Use
  Company Number: US-PFIZER INC-2012257723

PATIENT
  Age: 79 Year
  Sex: Female
  Weight: 65.31 kg

DRUGS (6)
  1. LYRICA [Suspect]
     Indication: FIBROMYALGIA
     Dosage: 50 mg, Daily
     Dates: start: 2012, end: 2012
  2. LYRICA [Suspect]
     Dosage: 50mg in morning and 2x50mg at night
     Dates: start: 2012, end: 2012
  3. LYRICA [Suspect]
     Dosage: UNK
     Dates: start: 2012
  4. IBUPROFEN [Suspect]
     Indication: ARTHRITIS
     Dosage: 800 mg, UNK
     Dates: start: 2012, end: 2012
  5. IBUPROFEN [Suspect]
     Indication: PARAESTHESIA
  6. MELOXICAM [Concomitant]
     Indication: ARTHRITIS
     Dosage: 7.5 mg, daily

REACTIONS (9)
  - Weight increased [Not Recovered/Not Resolved]
  - Middle insomnia [Not Recovered/Not Resolved]
  - Paraesthesia [Not Recovered/Not Resolved]
  - Hypoaesthesia [Not Recovered/Not Resolved]
  - Dry mouth [Not Recovered/Not Resolved]
  - Blood cholesterol abnormal [Unknown]
  - Abdominal discomfort [Unknown]
  - Drug dose omission [Unknown]
  - Fibromyalgia [Not Recovered/Not Resolved]
